FAERS Safety Report 8822101 (Version 1)
Quarter: 2012Q4

REPORT INFORMATION
  Report Type: 
  Country: RU (occurrence: RU)
  Receive Date: 20121003
  Receipt Date: 20121003
  Transmission Date: 20130627
  Serious: Yes (Hospitalization)
  Sender: FDA-Public Use
  Company Number: RU-009507513-1208RUS004817

PATIENT

DRUGS (2)
  1. PUREGON PEN [Suspect]
     Indication: INFERTILITY FEMALE
     Dosage: 300 IU, Once
     Route: 058
     Dates: start: 20120716, end: 20120716
  2. PUREGON PEN [Suspect]
     Indication: IN VITRO FERTILISATION

REACTIONS (11)
  - Pyrexia [Unknown]
  - Tremor [Unknown]
  - Pollakiuria [Unknown]
  - Angioedema [Recovered/Resolved]
  - Tinnitus [Recovered/Resolved]
  - Dizziness [Recovered/Resolved]
  - Body temperature increased [Unknown]
  - Diarrhoea [Unknown]
  - Nausea [Recovered/Resolved]
  - Headache [Recovered/Resolved]
  - Chest pain [None]
